FAERS Safety Report 25742063 (Version 1)
Quarter: 2025Q3

REPORT INFORMATION
  Report Type: Spontaneous
  Country: AU (occurrence: AU)
  Receive Date: 20250829
  Receipt Date: 20250829
  Transmission Date: 20251020
  Serious: Yes (Life-Threatening, Hospitalization, Other)
  Sender: AMGEN
  Company Number: AU-AMGEN-AUSSP2025167115

PATIENT
  Age: 44 Year
  Sex: Female

DRUGS (9)
  1. ADALIMUMAB [Suspect]
     Active Substance: ADALIMUMAB
     Indication: Pyoderma gangrenosum
     Dosage: 40 MILLIGRAM, QWK
     Route: 065
  2. USTEKINUMAB [Suspect]
     Active Substance: USTEKINUMAB
     Indication: Pyoderma gangrenosum
     Dosage: 45 MILLIGRAM, Q6WK
     Route: 065
  3. CYCLOSPORINE [Suspect]
     Active Substance: CYCLOSPORINE
     Indication: Pyoderma gangrenosum
     Dosage: 3 MILLIGRAM/KILOGRAM, QD
     Route: 065
  4. HUMAN IMMUNOGLOBULIN G [Suspect]
     Active Substance: HUMAN IMMUNOGLOBULIN G
     Indication: Pyoderma gangrenosum
     Dosage: 1 GRAM PER KILOGRAM OVER TWO DAYS, Q4WK
     Route: 040
  5. INFLIXIMAB [Suspect]
     Active Substance: INFLIXIMAB
     Indication: Pyoderma gangrenosum
     Dosage: 625 MILLIGRAM, Q4WK
     Route: 065
  6. METHOTREXATE [Suspect]
     Active Substance: METHOTREXATE
     Indication: Pyoderma gangrenosum
     Dosage: 10 MILLIGRAM, QWK
     Route: 065
  7. METHYLPREDNISOLONE [Suspect]
     Active Substance: METHYLPREDNISOLONE
     Indication: Pyoderma gangrenosum
     Dosage: 500 MILLIGRAM, QD
     Route: 040
  8. MYCOPHENOLIC ACID [Suspect]
     Active Substance: MYCOPHENOLIC ACID
     Indication: Pyoderma gangrenosum
     Dosage: 1.5 MILLIGRAM, BID
     Route: 065
  9. PREDNISOLONE [Suspect]
     Active Substance: PREDNISOLONE
     Indication: Pyoderma gangrenosum
     Dosage: 5-50MG QD
     Route: 048

REACTIONS (6)
  - Pyoderma gangrenosum [Recovered/Resolved]
  - Pneumonia [Unknown]
  - Sepsis [Unknown]
  - Skin infection [Unknown]
  - Drug ineffective for unapproved indication [Unknown]
  - Off label use [Unknown]
